FAERS Safety Report 9528261 (Version 1)
Quarter: 2013Q1

REPORT INFORMATION
  Report Type: Spontaneous
  Country: US (occurrence: None)
  Receive Date: 20130314
  Receipt Date: 20130314
  Transmission Date: 20140127
  Serious: Yes (Other)
  Sender: FDA-Public Use
  Company Number: 1211USA011942

PATIENT
  Age: 59 Year
  Sex: Male

DRUGS (12)
  1. VICTRELIS [Suspect]
     Route: 048
  2. RIBAVIRIN (RIBAVIRIN) CAPSULE [Suspect]
     Route: 048
  3. PEGASYS [Suspect]
     Route: 058
  4. CALTRATE (CALCIUM CARBONATE (+) CHOLECALCIFEROL) (CALCIUM CARBONATE, CHOLECALCIFEROL) [Concomitant]
  5. AMBIEN (ZOLPIDEM TARTRATE) [Concomitant]
  6. SERTRALINE HYDROCHLORIDE (SERTRALINE HYDROCHLORIDE) [Concomitant]
  7. LISINOPRIL (LISINOPRIL) [Concomitant]
  8. ASPIRIN (ASPIRIN) [Concomitant]
  9. OMEGA-3 MARINE TRIGLYCERIDES (OMEGA-3 MARINE TRIGLYCERIDES) [Concomitant]
  10. MAXI MULTI (ALOE VERA, AMINO ACIDES (UNSPECIFIED), MINERALS (UNSPECIFIED), VITAMINS (UNSPECIFIED)) [Concomitant]
  11. TYLENOL (ACETAMINOPHEN) [Concomitant]
  12. AMERICAN HEALTH SUPER ACEROLA PLUS VITAMIN C (ACEROLA, ASCORBIC ACID, BIOFLAVONOIDS, BUCKWHEAT, ROSE HIPS) [Concomitant]

REACTIONS (1)
  - Red blood cell count decreased [None]
